FAERS Safety Report 6578749-4 (Version None)
Quarter: 2010Q1

REPORT INFORMATION
  Report Type: 
  Country: None (occurrence: None)
  Receive Date: 20100202
  Receipt Date: 20100118
  Transmission Date: 20100710
  Serious: Yes (Death)
  Sender: FDA-Public Use
  Company Number: 2010S1000050

PATIENT
  Age: 77 Year
  Sex: Female

DRUGS (2)
  1. ROXICODONE [Suspect]
     Dosage: PO
     Route: 048
     Dates: end: 20080101
  2. ACETAMINOPHEN [Suspect]
     Dosage: PO
     Route: 048
     Dates: end: 20080101

REACTIONS (1)
  - COMPLETED SUICIDE [None]
